FAERS Safety Report 5380424-9 (Version None)
Quarter: 2007Q3

REPORT INFORMATION
  Report Type: 
  Country: None (occurrence: None)
  Receive Date: 20070706
  Receipt Date: 20070529
  Transmission Date: 20080115
  Serious: No
  Sender: FDA-Public Use
  Company Number: A0653183A

PATIENT
  Age: 68 Year
  Sex: Female

DRUGS (6)
  1. TYKERB [Suspect]
     Indication: BREAST CANCER
     Dosage: 5TAB PER DAY
     Route: 048
     Dates: start: 20070425
  2. XELODA [Suspect]
     Dosage: 1000MG TWICE PER DAY
     Dates: start: 20070423
  3. THYROID TAB [Concomitant]
  4. OXYCODONE HCL [Concomitant]
  5. NEURONTIN [Concomitant]
  6. DARVON [Concomitant]

REACTIONS (1)
  - DIARRHOEA [None]
